FAERS Safety Report 11188776 (Version 7)
Quarter: 2016Q1

REPORT INFORMATION
  Report Type: Report from Study
  Country: FR (occurrence: FR)
  Receive Date: 20150615
  Receipt Date: 20160111
  Transmission Date: 20160525
  Serious: Yes (Death, Life-Threatening, Hospitalization)
  Sender: FDA-Public Use
  Company Number: FR-BAYER-2014-152588

PATIENT
  Age: 65 Year
  Sex: Female
  Weight: 74 kg

DRUGS (40)
  1. FIXICAL D3 [Concomitant]
     Indication: GASTRIC BYPASS
     Dosage: DAILY DOSE 1 TAB
     Route: 048
  2. OXYCONTIN [Concomitant]
     Active Substance: OXYCODONE HYDROCHLORIDE
     Indication: ABDOMINAL PAIN
     Dosage: 5 MG, BID
     Route: 048
     Dates: start: 20141203
  3. SERESTA [Concomitant]
     Active Substance: OXAZEPAM
     Indication: ANXIETY
     Dosage: 20 MG PER DAY
     Route: 048
     Dates: start: 20141106, end: 20141112
  4. REGORAFENIB [Suspect]
     Active Substance: REGORAFENIB
     Indication: HEPATOCELLULAR CARCINOMA
     Dosage: 120 MG/DAY
     Route: 048
     Dates: start: 20141016, end: 20141105
  5. VITAMIN E [Concomitant]
     Active Substance: .ALPHA.-TOCOPHEROL
     Indication: GASTRIC BYPASS
     Dosage: DAILY DOSE 1 TAB
     Route: 048
  6. OXYCONTIN [Concomitant]
     Active Substance: OXYCODONE HYDROCHLORIDE
     Indication: ABDOMINAL PAIN
     Dosage: DAILY DOSE 20 MG
     Route: 048
     Dates: start: 20140923
  7. INEXIUM [Concomitant]
     Active Substance: ESOMEPRAZOLE
     Dosage: 40 MG PER DAY
     Route: 048
     Dates: start: 20140908
  8. ACUPAN [Concomitant]
     Active Substance: NEFOPAM HYDROCHLORIDE
     Indication: ABDOMINAL PAIN
     Dosage: 20 MG, PRN
     Route: 048
     Dates: start: 20141004, end: 20141203
  9. TOPALGIC [TRAMADOL HYDROCHLORIDE] [Concomitant]
     Active Substance: TRAMADOL HYDROCHLORIDE
     Indication: ABDOMINAL PAIN
     Dosage: 50 MG, PRN
     Route: 048
     Dates: start: 20141008, end: 20141030
  10. ZOMETA [Concomitant]
     Active Substance: ZOLEDRONIC ACID
     Indication: HYPERCALCAEMIA
     Dosage: 4 MG/100 ML PER DAY
     Route: 042
     Dates: start: 20141009, end: 20141013
  11. REGORAFENIB [Suspect]
     Active Substance: REGORAFENIB
     Indication: HEPATOCELLULAR CARCINOMA
     Dosage: 160 MG, QD
     Route: 048
     Dates: start: 20140908, end: 20140923
  12. PARACETAMOL [Concomitant]
     Active Substance: ACETAMINOPHEN
     Indication: ABDOMINAL PAIN
     Dosage: UNK UNK, PRN
     Route: 048
  13. DUPHALAC [Concomitant]
     Active Substance: LACTULOSE
     Dosage: 6
     Route: 048
  14. XANAX [Concomitant]
     Active Substance: ALPRAZOLAM
     Indication: INSOMNIA
     Dosage: 0.25 MG PER DAY
     Route: 048
     Dates: start: 20141115, end: 20141117
  15. IMOVANE [Concomitant]
     Active Substance: ZOPICLONE
     Indication: INSOMNIA
     Dosage: 3.75 MG PER DAY
     Route: 048
     Dates: start: 20141120, end: 20141123
  16. DOLIPRANE [Concomitant]
     Active Substance: ACETAMINOPHEN
     Indication: ABDOMINAL PAIN
     Dosage: 1 G, PRN
     Route: 048
     Dates: start: 2014
  17. LAROXYL [Concomitant]
     Active Substance: AMITRIPTYLINE
     Indication: ANXIETY
     Dosage: PRN
     Route: 048
     Dates: start: 20141113, end: 20141120
  18. IMOVANE [Concomitant]
     Active Substance: ZOPICLONE
     Indication: INSOMNIA
     Dosage: 7.5 MG PER DAY
     Route: 048
     Dates: start: 20141102, end: 20141129
  19. REGORAFENIB [Suspect]
     Active Substance: REGORAFENIB
     Indication: HEPATOCELLULAR CARCINOMA
     Dosage: 80 MG, DAILY
     Route: 048
     Dates: start: 20141113, end: 20141203
  20. TARDYFERON [Concomitant]
     Active Substance: FERROUS SULFATE\FOLIC ACID
     Indication: ANAEMIA
     Dosage: 80 MG/DAY
     Route: 048
  21. TARDYFERON [Concomitant]
     Active Substance: FERROUS SULFATE\FOLIC ACID
     Indication: ANAEMIA
     Dosage: 80 MG PER DAY
     Route: 048
     Dates: start: 20140625, end: 20141203
  22. OFLOXACIN. [Concomitant]
     Active Substance: OFLOXACIN
     Indication: URINARY TRACT INFECTION
     Dosage: DAILY DOSE 400 MG
     Route: 048
     Dates: start: 20140923, end: 20140930
  23. CLAFORAN [Concomitant]
     Active Substance: CEFOTAXIME SODIUM
     Indication: PYREXIA
     Dosage: 3 G/DAY
     Route: 042
     Dates: start: 20141110, end: 20141114
  24. TOPALGIC [TRAMADOL HYDROCHLORIDE] [Concomitant]
     Active Substance: TRAMADOL HYDROCHLORIDE
     Indication: ABDOMINAL PAIN
     Dosage: 100 MG, BID
     Route: 048
     Dates: start: 20141006, end: 20141106
  25. DOLIPRANE [Concomitant]
     Active Substance: ACETAMINOPHEN
     Indication: PYREXIA
     Dosage: 3 G PER DAY
     Route: 048
     Dates: start: 20141110
  26. SPASFON [Concomitant]
     Active Substance: PHLOROGLUCINOL
     Indication: ABDOMINAL PAIN
     Dosage: 2 DF, QID
     Route: 048
     Dates: start: 20141106, end: 20141124
  27. PRIMPERAN [Concomitant]
     Active Substance: METOCLOPRAMIDE HYDROCHLORIDE
     Indication: NAUSEA
     Dosage: 20 MG/DAY
     Route: 042
     Dates: start: 20141106
  28. XANAX [Concomitant]
     Active Substance: ALPRAZOLAM
     Indication: INSOMNIA
     Dosage: 0.5 MG PER DAY
     Route: 048
     Dates: start: 20141117, end: 20141129
  29. ELEVIT VITAMINE B9 [Concomitant]
     Indication: GASTRIC BYPASS
     Dosage: DAILY DOSE 1 TAB
     Route: 048
  30. PARACETAMOL [Concomitant]
     Active Substance: ACETAMINOPHEN
     Indication: ABDOMINAL PAIN
     Dosage: 3G/DAY
     Route: 048
  31. INEXIUM [Concomitant]
     Active Substance: ESOMEPRAZOLE
     Dosage: 750 MG/DAY
     Route: 048
  32. LOVENOX [Concomitant]
     Active Substance: ENOXAPARIN SODIUM
     Indication: PROPHYLAXIS
     Dosage: 0.4 ML, QID
     Route: 042
     Dates: start: 20140930, end: 20141022
  33. LOVENOX [Concomitant]
     Active Substance: ENOXAPARIN SODIUM
     Indication: PROPHYLAXIS
     Dosage: 0.4 ML/DAY
     Route: 042
     Dates: start: 20141106
  34. PRIMPERAN [Concomitant]
     Active Substance: METOCLOPRAMIDE HYDROCHLORIDE
     Indication: NAUSEA
     Dosage: 100 MG/2 ML PRN
     Route: 042
     Dates: start: 20141004, end: 20141018
  35. OXYCODONE [Concomitant]
     Active Substance: OXYCODONE
     Indication: ABDOMINAL PAIN
     Dosage: 20 MG, TID
     Route: 048
     Dates: start: 20140923, end: 20141202
  36. NORSET [Concomitant]
     Active Substance: MIRTAZAPINE
     Indication: ANXIETY
     Dosage: 15 MG PER DAY
     Route: 048
     Dates: start: 20141203
  37. BIONOLYTE G 5 [Concomitant]
     Indication: DECREASED APPETITE
     Dosage: 500 CC PER DAY
     Route: 042
     Dates: start: 20141110, end: 20141115
  38. ESOMEPRAZOLE [Concomitant]
     Active Substance: ESOMEPRAZOLE
     Indication: GASTROOESOPHAGEAL REFLUX DISEASE
     Dosage: DAILY DOSE 40 MG
     Route: 048
  39. OXAZEPAM. [Concomitant]
     Active Substance: OXAZEPAM
     Dosage: 200 MG/DAY
     Route: 048
  40. BIONOLYTE G 5 [Concomitant]
     Indication: DECREASED APPETITE
     Dosage: 10000 CC PER DAY
     Route: 042
     Dates: start: 20141108, end: 20141109

REACTIONS (5)
  - General physical health deterioration [Recovering/Resolving]
  - General physical health deterioration [Not Recovered/Not Resolved]
  - Aspartate aminotransferase increased [Not Recovered/Not Resolved]
  - Bronchial obstruction [Fatal]
  - General physical health deterioration [Not Recovered/Not Resolved]

NARRATIVE: CASE EVENT DATE: 20140930
